FAERS Safety Report 24646568 (Version 1)
Quarter: 2024Q4

REPORT INFORMATION
  Report Type: Spontaneous
  Country: US (occurrence: US)
  Receive Date: 20241121
  Receipt Date: 20241121
  Transmission Date: 20250115
  Serious: Yes (Other)
  Sender: SANOFI AVENTIS
  Company Number: US-SANOFI-02306559

PATIENT
  Sex: Female

DRUGS (1)
  1. DUPIXENT [Suspect]
     Active Substance: DUPILUMAB
     Indication: Asthma
     Dosage: UNK

REACTIONS (5)
  - Anaphylactic reaction [Unknown]
  - Loss of consciousness [Unknown]
  - Throat irritation [Unknown]
  - Vomiting [Unknown]
  - Urticaria [Unknown]
